FAERS Safety Report 9677133 (Version 1)
Quarter: 2013Q4

REPORT INFORMATION
  Report Type: Spontaneous
  Country: SE (occurrence: SE)
  Receive Date: 20131108
  Receipt Date: 20131108
  Transmission Date: 20140711
  Serious: Yes (Hospitalization)
  Sender: FDA-Public Use
  Company Number: SE-ROCHE-1300869

PATIENT
  Sex: 0

DRUGS (2)
  1. ALTEPLASE [Suspect]
     Indication: CEREBROVASCULAR ACCIDENT
     Route: 065
  2. ENALAPRIL [Concomitant]

REACTIONS (1)
  - Angioedema [Recovered/Resolved]
